FAERS Safety Report 23605479 (Version 1)
Quarter: 2024Q1

REPORT INFORMATION
  Report Type: Report from Study
  Country: US (occurrence: US)
  Receive Date: 20240307
  Receipt Date: 20240307
  Transmission Date: 20240410
  Serious: Yes (Other)
  Sender: FDA-Public Use
  Company Number: US-SA-SAC20220122000043

PATIENT
  Age: 39 Year
  Sex: Male

DRUGS (1)
  1. AGALSIDASE BETA [Suspect]
     Active Substance: AGALSIDASE BETA
     Indication: Fabry^s disease
     Dosage: 65 MG, QOW
     Route: 042
     Dates: start: 20211124

REACTIONS (9)
  - Renal failure [Not Recovered/Not Resolved]
  - Renal impairment [Unknown]
  - Glomerular filtration rate decreased [Not Recovered/Not Resolved]
  - Heart rate decreased [Unknown]
  - Temperature intolerance [Unknown]
  - Anhidrosis [Unknown]
  - Psoriasis [Unknown]
  - Cardiac disorder [Unknown]
  - Pain in extremity [Unknown]

NARRATIVE: CASE EVENT DATE: 20211201
